FAERS Safety Report 24046267 (Version 1)
Quarter: 2024Q3

REPORT INFORMATION
  Report Type: Spontaneous
  Country: CN (occurrence: CN)
  Receive Date: 20240703
  Receipt Date: 20240703
  Transmission Date: 20241017
  Serious: Yes (Hospitalization)
  Sender: PFIZER
  Company Number: CN-PFIZER INC-PV202400085682

PATIENT
  Age: 8 Year
  Sex: Male
  Weight: 24 kg

DRUGS (3)
  1. CYTARABINE [Suspect]
     Active Substance: CYTARABINE
     Indication: Chemotherapy
     Dosage: 36 MG, 1X/DAY
     Route: 037
     Dates: start: 20240605, end: 20240605
  2. METHOTREXATE [Suspect]
     Active Substance: METHOTREXATE
     Indication: Chemotherapy
     Dosage: 12 MG, 1X/DAY
     Route: 037
     Dates: start: 20240605, end: 20240605
  3. VINCRISTINE SULFATE [Suspect]
     Active Substance: VINCRISTINE SULFATE
     Indication: Chemotherapy
     Dosage: 1.25 MG, 1X/DAY
     Route: 041
     Dates: start: 20240605, end: 20240605

REACTIONS (7)
  - Myelosuppression [Recovering/Resolving]
  - Infection [Recovering/Resolving]
  - Sepsis [Recovering/Resolving]
  - Chills [Unknown]
  - Temperature intolerance [Unknown]
  - Cough [Unknown]
  - Oropharyngeal pain [Unknown]

NARRATIVE: CASE EVENT DATE: 20240601
